FAERS Safety Report 8685543 (Version 2)
Quarter: 2013Q2

REPORT INFORMATION
  Report Type: Spontaneous
  Country: US (occurrence: US)
  Receive Date: 20120726
  Receipt Date: 20130614
  Transmission Date: 20140414
  Serious: Yes (Hospitalization)
  Sender: FDA-Public Use
  Company Number: US-B.I. PHARMACEUTICALS,INC./RIDGEFIELD-2012-BP-04686BP

PATIENT
  Age: 72 Year
  Sex: Female

DRUGS (12)
  1. SPIRIVA HANDIHALER [Suspect]
     Indication: CHRONIC OBSTRUCTIVE PULMONARY DISEASE
     Dosage: 18 MCG
     Route: 048
     Dates: start: 201110
  2. SPIRIVA HANDIHALER [Suspect]
     Indication: DYSPNOEA
     Dosage: 18 MCG
     Route: 055
     Dates: start: 2011
  3. MAALOX [Concomitant]
     Indication: ABDOMINAL DISCOMFORT
     Dates: start: 2010
  4. TUMS [Concomitant]
     Indication: ABDOMINAL DISCOMFORT
     Dates: start: 2010
  5. MIRALAX [Concomitant]
     Indication: CONSTIPATION
     Dates: start: 2010
  6. METAMUCIL [Concomitant]
     Indication: CONSTIPATION
     Dates: start: 2010
  7. ASA [Concomitant]
     Indication: ANTICOAGULANT THERAPY
     Dosage: 81 MG
     Route: 048
     Dates: start: 2010
  8. DIOVAN [Concomitant]
     Indication: HYPERTENSION
     Dosage: 80 MG
     Route: 048
  9. LIBRAX [Concomitant]
     Indication: ABDOMINAL DISCOMFORT
     Dosage: STRENGH: 5/2.5MG DAILY DOSE: 10/5MG
     Route: 048
     Dates: start: 2010
  10. LIBRAX [Concomitant]
     Indication: ANXIETY
  11. VITAMIN D3 [Concomitant]
     Indication: VITAMIN D DECREASED
     Dosage: 400 MG
     Route: 048
  12. DILTIAZEM ER CD [Concomitant]
     Indication: CARDIAC DISORDER
     Dosage: 180 MG
     Route: 048

REACTIONS (8)
  - Lung disorder [Not Recovered/Not Resolved]
  - Arrhythmia [Recovered/Resolved]
  - Product quality issue [Recovered/Resolved with Sequelae]
  - Pulmonary oedema [Recovered/Resolved]
  - Renal impairment [Recovered/Resolved]
  - Heart rate increased [Recovered/Resolved]
  - Sinusitis [Not Recovered/Not Resolved]
  - Sinusitis [Not Recovered/Not Resolved]
